FAERS Safety Report 7072896-9 (Version None)
Quarter: 2010Q4

REPORT INFORMATION
  Report Type: 
  Country: None (occurrence: None)
  Receive Date: 20101029
  Receipt Date: 20100326
  Transmission Date: 20110411
  Serious: No
  Sender: FDA-Public Use
  Company Number: A0852195A

PATIENT
  Age: 56 Year
  Sex: Female

DRUGS (7)
  1. ADVAIR DISKUS 100/50 [Suspect]
     Indication: CHRONIC OBSTRUCTIVE PULMONARY DISEASE
     Dosage: 2PUFF TWICE PER DAY
     Route: 055
     Dates: start: 20100311, end: 20100313
  2. FISH OIL [Concomitant]
  3. DYAZIDE [Concomitant]
  4. SIMVASTATIN [Concomitant]
  5. DOXEPIN HCL [Concomitant]
  6. PROVENTIL [Concomitant]
  7. ALBUTEROL [Concomitant]

REACTIONS (4)
  - CHEILITIS [None]
  - GLOSSODYNIA [None]
  - OROPHARYNGEAL PAIN [None]
  - STOMATITIS [None]
